FAERS Safety Report 25963411 (Version 1)
Quarter: 2025Q4

REPORT INFORMATION
  Report Type: Report from Study
  Country: US (occurrence: US)
  Receive Date: 20251027
  Receipt Date: 20251027
  Transmission Date: 20260117
  Serious: Yes (Hospitalization)
  Sender: MALLINCKRODT
  Company Number: US-MALLINCKRODT-MNK202506162

PATIENT
  Age: 65 Year
  Sex: Male

DRUGS (1)
  1. CORTICOTROPIN [Suspect]
     Active Substance: CORTICOTROPIN
     Indication: Interstitial lung disease
     Dosage: 80 UNITS
     Route: 058
     Dates: start: 202506

REACTIONS (2)
  - Haemoptysis [Unknown]
  - Haematemesis [Unknown]

NARRATIVE: CASE EVENT DATE: 20250101
